FAERS Safety Report 5871943 (Version 7)
Quarter: 2018Q4

REPORT INFORMATION
  Report Type: Report from Study
  Country: AU (occurrence: AU)
  Receive Date: 20050902
  Receipt Date: 20181228
  Transmission Date: 20190205
  Serious: Yes (Other)
  Sender: FDA-Public Use
  Company Number: PHHO2005AU13111

PATIENT
  Age: 70 Year
  Sex: Male

DRUGS (4)
  1. RADIOTHERAPY [Concomitant]
     Active Substance: RADIATION THERAPY
     Indication: PROSTATE CANCER
     Dosage: 2 GY PER FRACTION
     Route: 065
     Dates: start: 20050317
  2. MULTIVITAMIN PREPARATIONS WITH OR W/O MINERAL [Concomitant]
     Indication: PRODUCT USED FOR UNKNOWN INDICATION
     Dosage: UNK
     Route: 065
  3. ZOLEDRONATE [Suspect]
     Active Substance: ZOLEDRONIC ACID
     Indication: METASTASES TO BONE
     Dosage: 4 MG, Q3MO
     Route: 042
     Dates: start: 20041018, end: 20050818
  4. LUCRIN [Concomitant]
     Active Substance: LEUPROLIDE ACETATE
     Indication: PROSTATE CANCER
     Dosage: 22.5 MG, Q3MO
     Route: 030
     Dates: start: 20041012

REACTIONS (7)
  - Osteonecrosis of jaw [Recovered/Resolved]
  - Gingival pain [Recovered/Resolved]
  - Discomfort [Recovered/Resolved]
  - Gingivitis [Recovered/Resolved]
  - Soft tissue infection [Recovered/Resolved]
  - Bone lesion [Recovered/Resolved]
  - Osteomyelitis [Recovered/Resolved]

NARRATIVE: CASE EVENT DATE: 20050714
